FAERS Safety Report 6710150-2 (Version None)
Quarter: 2010Q2

REPORT INFORMATION
  Report Type: 
  Country: None (occurrence: None)
  Receive Date: 20100430
  Receipt Date: 20100421
  Transmission Date: 20101027
  Serious: Yes (Hospitalization)
  Sender: FDA-Public Use
  Company Number: TOR 2010-0063

PATIENT
  Age: 59 Year
  Sex: Female

DRUGS (3)
  1. FARESTON [Suspect]
     Indication: BREAST CANCER RECURRENT
     Dosage: 120 MG ORAL
     Route: 048
     Dates: start: 20080719, end: 20090104
  2. HERCEPTIN [Concomitant]
  3. ZOMETA [Concomitant]

REACTIONS (13)
  - ACUTE LYMPHOCYTIC LEUKAEMIA [None]
  - ANAEMIA [None]
  - BLOOD ALKALINE PHOSPHATASE INCREASED [None]
  - BLOOD CREATININE DECREASED [None]
  - BLOOD GLUCOSE DECREASED [None]
  - BLOOD LACTATE DEHYDROGENASE INCREASED [None]
  - BLOOD UREA DECREASED [None]
  - GAMMA-GLUTAMYLTRANSFERASE INCREASED [None]
  - INFECTION [None]
  - METASTASES TO BONE MARROW [None]
  - PLATELET COUNT DECREASED [None]
  - RED BLOOD CELL COUNT DECREASED [None]
  - WHITE BLOOD CELL COUNT DECREASED [None]
